FAERS Safety Report 5763859-1 (Version None)
Quarter: 2008Q2

REPORT INFORMATION
  Report Type: 
  Country: None (occurrence: None)
  Receive Date: 20080602
  Receipt Date: 20080325
  Transmission Date: 20081010
  Serious: Yes (Other)
  Sender: FDA-Public Use
  Company Number: PHEH2008US03159

PATIENT

DRUGS (1)
  1. TEKTURNA [Suspect]
     Dosage: 150 MG, QD

REACTIONS (2)
  - DIALYSIS [None]
  - HYPERKALAEMIA [None]
